FAERS Safety Report 8365004-5 (Version None)
Quarter: 2012Q2

REPORT INFORMATION
  Report Type: 
  Country: None (occurrence: None)
  Receive Date: 20120516
  Receipt Date: 20120508
  Transmission Date: 20120825
  Serious: Yes (Death)
  Sender: FDA-Public Use
  Company Number: US-GLAXOSMITHKLINE-A0977591A

PATIENT
  Age: 62 Year
  Sex: Male

DRUGS (3)
  1. ADVAIR DISKUS 100/50 [Concomitant]
  2. HYCAMTIN [Suspect]
     Indication: LUNG NEOPLASM MALIGNANT
     Dosage: 3MG SEE DOSAGE TEXT
     Route: 048
     Dates: start: 20110310
  3. METHADONE HCL [Concomitant]

REACTIONS (1)
  - DEATH [None]
